FAERS Safety Report 4523878-X (Version None)
Quarter: 2004Q4

REPORT INFORMATION
  Report Type: 
  Country: None (occurrence: None)
  Receive Date: 20041209
  Receipt Date: 20041209
  Transmission Date: 20050328
  Serious: Yes (Death)
  Sender: FDA-Public Use
  Company Number: None

PATIENT
  Age: 38 Month
  Sex: Female
  Weight: 35.3806 kg

DRUGS (3)
  1. CIPRO [Suspect]
     Indication: CIRCULATORY COLLAPSE
     Dosage: TWICE DAY  ORAL
     Route: 048
     Dates: start: 20020523, end: 20020525
  2. PRILOSEC [Concomitant]
  3. WELLBUTRIN [Concomitant]

REACTIONS (4)
  - ACUTE MYOCARDIAL INFARCTION [None]
  - APNOEA [None]
  - CIRCULATORY COLLAPSE [None]
  - SUDDEN DEATH [None]
